FAERS Safety Report 23988897 (Version 1)
Quarter: 2024Q2

REPORT INFORMATION
  Report Type: Report from Study
  Country: US (occurrence: US)
  Receive Date: 20240619
  Receipt Date: 20240619
  Transmission Date: 20240715
  Serious: Yes (Other)
  Sender: FDA-Public Use
  Company Number: US-UCBSA-2024030016

PATIENT
  Sex: Female

DRUGS (1)
  1. LACOSAMIDE [Suspect]
     Active Substance: LACOSAMIDE
     Indication: Seizure
     Dosage: 200MG - 1T BID

REACTIONS (4)
  - Pneumothorax [Unknown]
  - COVID-19 [Unknown]
  - Asthma [Unknown]
  - Hysterectomy [Unknown]

NARRATIVE: CASE EVENT DATE: 20200101
